FAERS Safety Report 5708126-7 (Version None)
Quarter: 2008Q2

REPORT INFORMATION
  Report Type: 
  Country: None (occurrence: None)
  Receive Date: 20080417
  Receipt Date: 20080408
  Transmission Date: 20081010
  Serious: Yes (Hospitalization)
  Sender: FDA-Public Use
  Company Number: A0707490A

PATIENT
  Sex: Female

DRUGS (25)
  1. AVANDIA [Suspect]
     Route: 048
     Dates: end: 20080104
  2. ACETAMINOPHEN AND HYDROCODONE BITARTRATE [Concomitant]
  3. ASPIRIN [Concomitant]
     Route: 048
  4. ZETIA [Concomitant]
     Route: 048
  5. FOLIC ACID [Concomitant]
     Route: 048
  6. LUTEIN [Concomitant]
  7. METOPROLOL TARTRATE [Concomitant]
     Route: 048
  8. GABAPENTIN [Concomitant]
     Route: 048
  9. FERROUS SUL ELX [Concomitant]
     Route: 048
  10. LORATADINE [Concomitant]
     Route: 048
  11. LISINOPRIL [Concomitant]
     Route: 048
  12. PRILOSEC [Concomitant]
     Route: 048
  13. TRAMADOL HCL [Concomitant]
     Route: 048
  14. GLIPIZIDE [Concomitant]
     Route: 048
  15. STOOL SOFTENER [Concomitant]
  16. CALCIUM + VITAMIN D [Concomitant]
  17. SIMVASTATIN [Concomitant]
     Route: 048
  18. NITROGLYCERIN [Concomitant]
     Route: 060
  19. SULFAMETHOXAZOLE WITH TRIMETHOPRIM DS [Concomitant]
     Route: 048
  20. PHENAZOPYRIDINE HCL TAB [Concomitant]
     Route: 048
  21. PROMETHAZINE [Concomitant]
     Route: 048
  22. COMBIVENT [Concomitant]
     Route: 055
  23. FLUCONAZOLE [Concomitant]
  24. MUCINEX [Concomitant]
     Route: 048
  25. LEVAQUIN [Concomitant]
     Route: 048

REACTIONS (4)
  - ATRIOVENTRICULAR BLOCK [None]
  - BACK PAIN [None]
  - PAIN IN EXTREMITY [None]
  - RENAL PAIN [None]
